FAERS Safety Report 20095199 (Version 2)
Quarter: 2021Q4

REPORT INFORMATION
  Report Type: Spontaneous
  Country: PT (occurrence: PT)
  Receive Date: 20211122
  Receipt Date: 20211207
  Transmission Date: 20220303
  Serious: Yes (Hospitalization, Other)
  Sender: FDA-Public Use
  Company Number: PT-DENTSPLY-2021SCDP000341

PATIENT
  Age: 43 Year
  Sex: Male

DRUGS (8)
  1. XYLOCAINE [Suspect]
     Active Substance: LIDOCAINE HYDROCHLORIDE
     Indication: Local anaesthesia
     Dosage: 20 MILLIGRAM (2 PUFFS) OF XYLOCAINE INTRANASAL SPRAY
     Route: 045
  2. LIDOCAINE [Suspect]
     Active Substance: LIDOCAINE
     Indication: Skin test
     Dosage: 10 MG/ML FOR SPT
  3. LIDOCAINE [Suspect]
     Active Substance: LIDOCAINE
     Dosage: 20 MG/ML FOR SPT
  4. MEPIVACAINE [Suspect]
     Active Substance: MEPIVACAINE HYDROCHLORIDE
     Indication: Skin test
     Dosage: 30 MG/ML FOR SPT
  5. ROPIVACAINE [Concomitant]
     Active Substance: ROPIVACAINE
     Indication: Skin test
     Dosage: 2 MG/ML FOR SPT
  6. ROPIVACAINE [Concomitant]
     Active Substance: ROPIVACAINE
     Dosage: 0.2 MG/ML FOR IDT
  7. ARTICAINE [Concomitant]
     Active Substance: ARTICAINE
     Indication: Skin test
     Dosage: 40 MG/ML FOR SPT
  8. ARTICAINE [Concomitant]
     Active Substance: ARTICAINE
     Dosage: 0.04-4 MG/ML FOR IDT

REACTIONS (4)
  - Anaphylactic shock [Recovered/Resolved]
  - Atrial fibrillation [Recovered/Resolved]
  - Type I hypersensitivity [Unknown]
  - Cross sensitivity reaction [Unknown]
